FAERS Safety Report 23596748 (Version 1)
Quarter: 2024Q1

REPORT INFORMATION
  Report Type: Spontaneous
  Country: JP (occurrence: JP)
  Receive Date: 20240305
  Receipt Date: 20240305
  Transmission Date: 20240409
  Serious: Yes (Other)
  Sender: FDA-Public Use
  Company Number: JP-PFIZER INC-202400053846

PATIENT
  Sex: Male

DRUGS (1)
  1. DIFLUCAN [Suspect]
     Active Substance: FLUCONAZOLE
     Indication: Candida infection
     Dosage: 100 MG
     Route: 041

REACTIONS (5)
  - Altered state of consciousness [Unknown]
  - Disorientation [Unknown]
  - Tremor [Unknown]
  - Musculoskeletal stiffness [Unknown]
  - Eating disorder [Unknown]
